FAERS Safety Report 6024642-5 (Version None)
Quarter: 2008Q4

REPORT INFORMATION
  Report Type: 
  Country: None (occurrence: None)
  Receive Date: 20081231
  Receipt Date: 20081223
  Transmission Date: 20090506
  Serious: Yes (Death)
  Sender: FDA-Public Use
  Company Number: US-ASTRAZENECA-2008AC03296

PATIENT
  Age: 18 Year
  Sex: Female

DRUGS (7)
  1. QUETIAPINE [Suspect]
     Route: 048
  2. ALPRAZOLAM [Suspect]
     Route: 048
  3. PRAZSOIN HCL [Suspect]
     Route: 048
  4. ETHANOL [Suspect]
     Route: 048
  5. VALPROIC ACID [Suspect]
     Route: 048
  6. LAMOTRIGINE [Suspect]
     Route: 048
  7. SERTRALINE [Suspect]
     Route: 048

REACTIONS (1)
  - COMPLETED SUICIDE [None]
